FAERS Safety Report 9537025 (Version 1)
Quarter: 2013Q3

REPORT INFORMATION
  Report Type: Spontaneous
  Country: US (occurrence: None)
  Receive Date: 20130918
  Receipt Date: 20130918
  Transmission Date: 20140515
  Serious: Yes (Hospitalization)
  Sender: FDA-Public Use
  Company Number: None

PATIENT
  Age: 51 Year
  Sex: Female
  Weight: 78.2 kg

DRUGS (9)
  1. PRASUGREL [Suspect]
     Indication: STENT PLACEMENT
     Dosage: 10MG/1PILL QD ORAL
     Route: 048
     Dates: start: 20130817, end: 20130909
  2. LORTAB [Concomitant]
  3. MIRALAX [Concomitant]
  4. PEPCID [Concomitant]
  5. LIPITOR [Concomitant]
  6. ASPIRIN [Concomitant]
  7. COREG [Concomitant]
  8. LISINOPRIL [Concomitant]
  9. LEVEMIR [Concomitant]

REACTIONS (1)
  - Thrombotic thrombocytopenic purpura [None]
